FAERS Safety Report 9863384 (Version 1)
Quarter: 2014Q1

REPORT INFORMATION
  Report Type: Spontaneous
  Country: US (occurrence: US)
  Receive Date: 20140203
  Receipt Date: 20140203
  Transmission Date: 20141002
  Serious: Yes (Hospitalization)
  Sender: FDA-Public Use
  Company Number: US-SA-2014SA011723

PATIENT
  Age: 15 Year
  Sex: Male

DRUGS (4)
  1. CAMPATH [Suspect]
     Indication: HISTIOCYTOSIS HAEMATOPHAGIC
     Route: 065
     Dates: start: 20140114, end: 20140114
  2. CAMPATH [Suspect]
     Indication: HISTIOCYTOSIS HAEMATOPHAGIC
     Route: 065
     Dates: start: 20140115, end: 20140115
  3. CAMPATH [Suspect]
     Indication: HISTIOCYTOSIS HAEMATOPHAGIC
     Route: 065
     Dates: start: 20140116, end: 20140116
  4. CAMPATH [Suspect]
     Indication: HISTIOCYTOSIS HAEMATOPHAGIC
     Route: 065
     Dates: start: 20140117, end: 20140117

REACTIONS (1)
  - Pancreatitis [Not Recovered/Not Resolved]
